FAERS Safety Report 22050628 (Version 1)
Quarter: 2023Q1

REPORT INFORMATION
  Report Type: Report from Study
  Country: CN (occurrence: CN)
  Receive Date: 20230301
  Receipt Date: 20230301
  Transmission Date: 20230418
  Serious: Yes (Hospitalization, Other)
  Sender: FDA-Public Use
  Company Number: CN-BAYER-2019-182642

PATIENT
  Age: 54 Year
  Sex: Male

DRUGS (1)
  1. NEXAVAR [Suspect]
     Active Substance: SORAFENIB
     Indication: Hepatocellular carcinoma
     Dosage: 400 MG, BID
     Route: 048
     Dates: start: 20150629

REACTIONS (3)
  - Liver disorder [Unknown]
  - Hepatocellular carcinoma [Unknown]
  - Abdominal lymphadenopathy [None]
